FAERS Safety Report 5921917-2 (Version None)
Quarter: 2008Q4

REPORT INFORMATION
  Report Type: 
  Country: None (occurrence: None)
  Receive Date: 20081017
  Receipt Date: 20081008
  Transmission Date: 20090506
  Serious: Yes (Hospitalization)
  Sender: FDA-Public Use
  Company Number: BE-AVENTIS-200815472EU

PATIENT
  Age: 52 Year
  Sex: Female
  Weight: 56 kg

DRUGS (8)
  1. CLEXANE [Suspect]
     Dosage: DOSE: UNK
     Route: 040
     Dates: start: 20080924, end: 20080924
  2. CLEXANE [Suspect]
     Route: 058
     Dates: start: 20080924
  3. CORUNO [Concomitant]
  4. ASPIRIN [Concomitant]
  5. MAGNESIUM NOS [Concomitant]
  6. CALCIUM NOS [Concomitant]
  7. LYSOMUCIL [Concomitant]
  8. PLAVIX [Concomitant]
     Dates: start: 20080923

REACTIONS (2)
  - CATHETER THROMBOSIS [None]
  - MYOCARDIAL INFARCTION [None]
